FAERS Safety Report 6059278-3 (Version None)
Quarter: 2009Q1

REPORT INFORMATION
  Report Type: 
  Country: None (occurrence: None)
  Receive Date: 20090128
  Receipt Date: 20090128
  Transmission Date: 20090719
  Serious: Yes (Hospitalization)
  Sender: FDA-Public Use
  Company Number: None

PATIENT
  Age: 52 Year
  Sex: Female
  Weight: 57.1532 kg

DRUGS (1)
  1. AMBIEN CR [Suspect]
     Indication: INSOMNIA
     Dosage: 1 AS NEEDED AT BEDTIME AS NEEDED PO
     Route: 048
     Dates: start: 20081117, end: 20090111

REACTIONS (1)
  - ANAPHYLACTIC SHOCK [None]
